FAERS Safety Report 18902231 (Version 2)
Quarter: 2021Q1

REPORT INFORMATION
  Report Type: Spontaneous
  Country: FR (occurrence: FR)
  Receive Date: 20210217
  Receipt Date: 20210302
  Transmission Date: 20210420
  Serious: Yes (Death, Life-Threatening, Hospitalization, Other)
  Sender: FDA-Public Use
  Company Number: FR-LUPIN PHARMACEUTICALS INC.-2021-01873

PATIENT
  Age: 37 Year
  Sex: Male

DRUGS (1)
  1. OXYCODONE [Suspect]
     Active Substance: OXYCODONE
     Indication: PAIN
     Dosage: UNK
     Route: 048

REACTIONS (11)
  - Hepatic failure [Recovering/Resolving]
  - Seizure [Fatal]
  - Metabolic acidosis [Recovering/Resolving]
  - Rhabdomyolysis [Recovering/Resolving]
  - Disseminated intravascular coagulation [Unknown]
  - Acute kidney injury [Recovering/Resolving]
  - Overdose [Fatal]
  - Toxic leukoencephalopathy [Fatal]
  - Coma [Fatal]
  - Hyperkalaemia [Recovering/Resolving]
  - Toxicity to various agents [Fatal]
